FAERS Safety Report 17009941 (Version 2)
Quarter: 2019Q4

REPORT INFORMATION
  Report Type: Spontaneous
  Country: FR (occurrence: FR)
  Receive Date: 20191108
  Receipt Date: 20191126
  Transmission Date: 20200122
  Serious: Yes (Other)
  Sender: FDA-Public Use
  Company Number: FR-PFIZER INC-2019484035

PATIENT
  Age: 30 Year
  Sex: Female

DRUGS (1)
  1. MINIDRIL [Suspect]
     Active Substance: ETHINYL ESTRADIOL\LEVONORGESTREL
     Indication: CONTRACEPTION

REACTIONS (3)
  - Ectopic pregnancy [Recovered/Resolved]
  - Abortion spontaneous [Unknown]
  - Product administration error [Unknown]

NARRATIVE: CASE EVENT DATE: 2018
